FAERS Safety Report 10240008 (Version 1)
Quarter: 2014Q2

REPORT INFORMATION
  Report Type: Spontaneous
  Country: GB (occurrence: GB)
  Receive Date: 20140616
  Receipt Date: 20140616
  Transmission Date: 20141212
  Serious: Yes (Other)
  Sender: FDA-Public Use
  Company Number: GB-MYLANLABS-2014S1013327

PATIENT
  Age: 50 Year
  Sex: Male
  Weight: 78 kg

DRUGS (7)
  1. LANSOPRAZOLE [Suspect]
     Dates: start: 20140522
  2. CHLORPHENAMINE [Concomitant]
     Dates: start: 20140428
  3. CO-CODAMOL [Concomitant]
     Dates: start: 20140319, end: 20140326
  4. EPIPEN [Concomitant]
     Dates: start: 20140428, end: 20140430
  5. JEXT [Concomitant]
     Dates: start: 20140501
  6. PREDNISOLONE [Concomitant]
     Dates: start: 20140428, end: 20140503
  7. RANITIDINE [Concomitant]
     Dates: start: 20140522

REACTIONS (4)
  - Urticaria [Recovered/Resolved]
  - Swollen tongue [Recovered/Resolved]
  - Rash [Recovered/Resolved]
  - Hypersensitivity [Recovered/Resolved]
